FAERS Safety Report 14142861 (Version 1)
Quarter: 2017Q4

REPORT INFORMATION
  Report Type: Spontaneous
  Country: US (occurrence: US)
  Receive Date: 20171030
  Receipt Date: 20171030
  Transmission Date: 20180321
  Serious: No
  Sender: FDA-Public Use
  Company Number: US-MYLANLABS-2017M1067101

PATIENT
  Sex: Male
  Weight: 82 kg

DRUGS (2)
  1. DYMISTA [Suspect]
     Active Substance: AZELASTINE HYDROCHLORIDE\FLUTICASONE PROPIONATE
     Indication: NASAL CONGESTION
     Dosage: ONE SPRAY IN EACH NOSTRIL
     Route: 045
     Dates: start: 20171003
  2. DYMISTA [Suspect]
     Active Substance: AZELASTINE HYDROCHLORIDE\FLUTICASONE PROPIONATE
     Indication: INFLAMMATION

REACTIONS (2)
  - No adverse event [Unknown]
  - Off label use [Not Recovered/Not Resolved]

NARRATIVE: CASE EVENT DATE: 20171003
